FAERS Safety Report 9528181 (Version 1)
Quarter: 2013Q1

REPORT INFORMATION
  Report Type: Spontaneous
  Country: US (occurrence: None)
  Receive Date: 20130320
  Receipt Date: 20130320
  Transmission Date: 20140127
  Serious: Yes (Other)
  Sender: FDA-Public Use
  Company Number: EUS-2012-00944

PATIENT
  Age: 3 Year
  Sex: Male

DRUGS (2)
  1. KIDROLASE [Suspect]
     Indication: ACUTE LYMPHOCYTIC LEUKAEMIA
     Dosage: SECOND INTENSIFICATION
     Route: 042
     Dates: start: 20120606, end: 20120607
  2. ERWINASE (ASPARAGINASE) [Suspect]
     Indication: ACUTE LYMPHOCYTIC LEUKAEMIA
     Dosage: ACCORDING TO CYCLE
     Route: 042
     Dates: start: 20120608, end: 20120626

REACTIONS (1)
  - Drug hypersensitivity [None]
